FAERS Safety Report 12706624 (Version 1)
Quarter: 2016Q3

REPORT INFORMATION
  Report Type: Spontaneous
  Country: DE (occurrence: DE)
  Receive Date: 20160901
  Receipt Date: 20160901
  Transmission Date: 20161109
  Serious: Yes (Congenital Anomaly)
  Sender: FDA-Public Use
  Company Number: DE-SUN PHARMACEUTICAL INDUSTRIES LTD-2016RR-122997

PATIENT
  Age: 1 Day
  Sex: Male
  Weight: 4.71 kg

DRUGS (5)
  1. SUMATRIPTAN. [Concomitant]
     Active Substance: SUMATRIPTAN
     Dosage: 100 MG, DAILY, IN WEEK 39
     Route: 064
  2. SUMATRIPTAN. [Concomitant]
     Active Substance: SUMATRIPTAN
     Indication: MIGRAINE
     Dosage: 100 MG, DAILY, IN WEEK 8
     Route: 064
  3. CYTOTEC [Concomitant]
     Active Substance: MISOPROSTOL
     Indication: LABOUR INDUCTION
     Dosage: 41.1-41.2 GESTATIONAL WEEK
     Route: 064
     Dates: start: 20160529, end: 20160530
  4. MIRTAZAPIN [Suspect]
     Active Substance: MIRTAZAPINE
     Indication: HYPEREMESIS GRAVIDARUM
     Dosage: 15 MG, DAILY,6.6-15.2 GESTATIONAL WEEK
     Route: 064
     Dates: start: 20151002, end: 20151103
  5. FOLIO (NEM) [Concomitant]
     Indication: PROPHYLAXIS OF NEURAL TUBE DEFECT
     Dosage: 0.4 MG, DAILY, 0-42 GESTATIONAL WEEK
     Route: 064
     Dates: start: 20150815, end: 20160604

REACTIONS (1)
  - Hypospadias [Not Recovered/Not Resolved]

NARRATIVE: CASE EVENT DATE: 20160604
